FAERS Safety Report 20856591 (Version 2)
Quarter: 2022Q3

REPORT INFORMATION
  Report Type: Spontaneous
  Country: US (occurrence: US)
  Receive Date: 20220520
  Receipt Date: 20220822
  Transmission Date: 20221027
  Serious: No
  Sender: FDA-Public Use
  Company Number: US-SA-SAC20220513000779

PATIENT
  Sex: Male

DRUGS (2)
  1. CERDELGA [Suspect]
     Active Substance: ELIGLUSTAT
     Indication: Gaucher^s disease
     Dosage: 84 MG, BID
     Route: 048
     Dates: start: 20150114
  2. CERDELGA [Suspect]
     Active Substance: ELIGLUSTAT
     Dosage: 1 DF, Q10D
     Route: 048

REACTIONS (1)
  - Inappropriate schedule of product administration [Unknown]
